FAERS Safety Report 5640923-9 (Version None)
Quarter: 2008Q1

REPORT INFORMATION
  Report Type: 
  Country: None (occurrence: None)
  Receive Date: 20080227
  Receipt Date: 20080215
  Transmission Date: 20080703
  Serious: Yes (Hospitalization)
  Sender: FDA-Public Use
  Company Number: GB-ROCHE-457709

PATIENT
  Age: 29 Year
  Sex: Male
  Weight: 80 kg

DRUGS (4)
  1. ROACCUTANE [Suspect]
     Dosage: 0.5MG/KG
     Route: 048
     Dates: start: 20020615
  2. ROACCUTANE [Suspect]
     Route: 048
     Dates: start: 20020801
  3. ROACCUTANE [Suspect]
     Route: 048
     Dates: end: 20030615
  4. CLINDAMYCIN HCL [Concomitant]
     Indication: CELLULITIS
     Route: 048
     Dates: start: 20030615

REACTIONS (2)
  - CHEST PAIN [None]
  - PLEURITIC PAIN [None]
